FAERS Safety Report 5917846-0 (Version None)
Quarter: 2008Q4

REPORT INFORMATION
  Report Type: 
  Country: None (occurrence: None)
  Receive Date: 20081014
  Receipt Date: 20081005
  Transmission Date: 20090506
  Serious: Yes (Other)
  Sender: FDA-Public Use
  Company Number: DE-ASTRAZENECA-2008PK02182

PATIENT
  Age: 493 Month
  Sex: Female
  Weight: 96 kg

DRUGS (2)
  1. SYMBICORT [Suspect]
     Indication: ASTHMA
     Dosage: 160/4.5 UG; 2 INHALATIONS TWICE DAILY
     Route: 055
     Dates: start: 20080402
  2. SINGULAIR [Concomitant]
     Indication: ASTHMA
     Route: 048
     Dates: start: 20080402

REACTIONS (1)
  - BENIGN INTRACRANIAL HYPERTENSION [None]
